FAERS Safety Report 20525698 (Version 1)
Quarter: 2022Q1

REPORT INFORMATION
  Report Type: Spontaneous
  Country: US (occurrence: None)
  Receive Date: 20220226
  Receipt Date: 20220226
  Transmission Date: 20220423
  Serious: Yes (Death)
  Sender: FDA-Public Use
  Company Number: None

PATIENT
  Age: 86 Year
  Sex: Male

DRUGS (1)
  1. PROMACTA [Suspect]
     Active Substance: ELTROMBOPAG OLAMINE
     Dosage: 50MG DAILY ORAL?
     Route: 048
     Dates: start: 202201, end: 20220226

REACTIONS (1)
  - Death [None]

NARRATIVE: CASE EVENT DATE: 20220226
